FAERS Safety Report 19447784 (Version 1)
Quarter: 2021Q2

REPORT INFORMATION
  Report Type: Spontaneous
  Country: FR (occurrence: FR)
  Receive Date: 20210622
  Receipt Date: 20210622
  Transmission Date: 20210717
  Serious: Yes (Hospitalization)
  Sender: FDA-Public Use
  Company Number: FR-TEVA-2021-FR-1923579

PATIENT
  Age: 14 Year
  Sex: Female
  Weight: 64.5 kg

DRUGS (4)
  1. IBUPROFENE [Suspect]
     Active Substance: IBUPROFEN
     Dosage: 4 TO 6 GRAMS?ROUTE OF ADMINISTRATION: ORAL.
     Route: 048
     Dates: start: 20210503, end: 20210503
  2. LOPERAMIDE BASE [Suspect]
     Active Substance: LOPERAMIDE
     Dosage: ROUTE OF ADMINISTRATION: ORAL.UNIT DOSE:24MILLLIGRAM
     Route: 048
     Dates: start: 20210503, end: 20210503
  3. PARACETAMOL [Suspect]
     Active Substance: ACETAMINOPHEN
     Dosage: ROUTE OF ADMINISTRATION: ORAL.:UNITDOSE:4GRAM
     Route: 048
     Dates: start: 20210503, end: 20210503
  4. SPASFON (PHLOROGLUCINOL) [Suspect]
     Active Substance: PHLOROGLUCINOL
     Dosage: ROUTE OF ADMINISTRATION : ORAL .UNIT DOSE:10DOSAGEFORM
     Route: 048
     Dates: start: 20210503, end: 20210503

REACTIONS (1)
  - Pancreatitis acute [Recovering/Resolving]

NARRATIVE: CASE EVENT DATE: 20210504
